FAERS Safety Report 7805643-0 (Version None)
Quarter: 2011Q4

REPORT INFORMATION
  Report Type: 
  Country: None (occurrence: None)
  Receive Date: 20111010
  Receipt Date: 20110930
  Transmission Date: 20120403
  Serious: Yes (Death, Hospitalization, Other)
  Sender: FDA-Public Use
  Company Number: JP-AMGEN-JPNCT2011000856

PATIENT
  Age: 61 Year
  Sex: Male
  Weight: 67 kg

DRUGS (16)
  1. CHLOR-TRIMETON [Concomitant]
     Dosage: UNK
     Route: 042
  2. NIVADIL [Concomitant]
     Dosage: UNK
     Route: 048
  3. PANITUMUMAB [Suspect]
     Dosage: 6 MG/KG, Q2WK
     Route: 041
     Dates: start: 20101119, end: 20110408
  4. FLUOROURACIL [Concomitant]
     Indication: COLORECTAL CANCER
     Route: 040
     Dates: start: 20100806
  5. ZOLPIDEM [Concomitant]
     Dosage: UNK
     Route: 048
  6. CORTICOSTEROIDS [Concomitant]
     Indication: PROPHYLAXIS
     Dosage: UNK
     Route: 065
  7. LEVOLEUCOVORIN CALCIUM [Concomitant]
     Indication: COLORECTAL CANCER
     Route: 041
     Dates: start: 20100806
  8. PANITUMUMAB [Suspect]
     Dosage: 4.8 MG/KG, Q2WK
     Route: 041
     Dates: start: 20110428, end: 20110428
  9. GRANISETRON [Concomitant]
     Dosage: UNK
     Route: 042
  10. PANITUMUMAB [Suspect]
     Indication: COLORECTAL CANCER
     Dosage: 6 MG/KG, Q2WK
     Route: 041
     Dates: start: 20100806, end: 20100820
  11. EURODIN [Concomitant]
     Dosage: UNK
     Route: 048
  12. ANTIHISTAMINES [Concomitant]
     Indication: PROPHYLAXIS
     Dosage: UNK
     Route: 065
  13. DECADRON [Concomitant]
     Dosage: UNK
     Route: 042
  14. AMARYL [Concomitant]
     Dosage: UNK
     Route: 048
  15. IRINOTECAN HCL [Concomitant]
     Indication: COLORECTAL CANCER
     Route: 041
     Dates: start: 20100806
  16. FLUOROURACIL [Concomitant]
     Route: 041
     Dates: start: 20100806

REACTIONS (7)
  - STAPHYLOCOCCAL INFECTION [None]
  - RENAL FAILURE ACUTE [None]
  - GASTROENTERITIS NOROVIRUS [None]
  - ENTEROCOLITIS FUNGAL [None]
  - DERMATITIS ACNEIFORM [None]
  - DISSEMINATED INTRAVASCULAR COAGULATION [None]
  - COLORECTAL CANCER [None]
